FAERS Safety Report 5596492-5 (Version None)
Quarter: 2008Q1

REPORT INFORMATION
  Report Type: 
  Country: None (occurrence: None)
  Receive Date: 20080118
  Receipt Date: 20080109
  Transmission Date: 20080703
  Serious: Yes (Life-Threatening, Hospitalization, Other)
  Sender: FDA-Public Use
  Company Number: US-PFIZER INC-2007073511

PATIENT
  Sex: Female

DRUGS (1)
  1. DILANTIN [Suspect]
     Indication: CONVULSION
     Route: 048

REACTIONS (33)
  - BLINDNESS [None]
  - BLOOD DISORDER [None]
  - CARDIOVASCULAR DISORDER [None]
  - COLITIS ULCERATIVE [None]
  - CORNEAL OPACITY [None]
  - DEHYDRATION [None]
  - EYE PAIN [None]
  - GASTROINTESTINAL HAEMORRHAGE [None]
  - HEPATIC FAILURE [None]
  - HERPES SIMPLEX [None]
  - INSOMNIA [None]
  - METABOLIC DISORDER [None]
  - MUCOSAL INFLAMMATION [None]
  - NAUSEA [None]
  - OESOPHAGITIS [None]
  - PAIN [None]
  - PHOTOPHOBIA [None]
  - PNEUMOCYSTIS JIROVECI PNEUMONIA [None]
  - PRURITUS [None]
  - PSEUDOMONAS INFECTION [None]
  - RASH [None]
  - RENAL FAILURE [None]
  - RESPIRATORY DISORDER [None]
  - SCAR [None]
  - SEPSIS [None]
  - STEVENS-JOHNSON SYNDROME [None]
  - SUPRAVENTRICULAR TACHYCARDIA [None]
  - THERAPEUTIC AGENT TOXICITY [None]
  - ULCERATIVE KERATITIS [None]
  - URINARY TRACT INFECTION [None]
  - VISION BLURRED [None]
  - VISUAL ACUITY REDUCED [None]
  - VOMITING [None]
